FAERS Safety Report 5628789-4 (Version None)
Quarter: 2008Q1

REPORT INFORMATION
  Report Type: 
  Country: None (occurrence: None)
  Receive Date: 20080214
  Receipt Date: 20080121
  Transmission Date: 20080703
  Serious: Yes (Hospitalization)
  Sender: FDA-Public Use
  Company Number: 080105975

PATIENT
  Age: 48 Year
  Sex: Female

DRUGS (1)
  1. MUCINEX MOISTURE SMART NASAL SPRAY (0.05% OXYMETAZOLINE HCL) [Suspect]
     Indication: NASAL CONGESTION
     Dosage: 1ACT, X 1 DOSE, INHALATION
     Route: 055
     Dates: start: 20080113, end: 20080113

REACTIONS (2)
  - BLOOD PRESSURE INCREASED [None]
  - DIZZINESS [None]
